FAERS Safety Report 23888863 (Version 1)
Quarter: 2024Q2

REPORT INFORMATION
  Report Type: Report from Study
  Country: CO (occurrence: CO)
  Receive Date: 20240523
  Receipt Date: 20240523
  Transmission Date: 20240717
  Serious: Yes (Hospitalization)
  Sender: FDA-Public Use
  Company Number: CO-RECORDATI-2024003688

PATIENT

DRUGS (3)
  1. ISTURISA [Suspect]
     Active Substance: OSILODROSTAT PHOSPHATE
     Indication: Pituitary-dependent Cushing^s syndrome
     Dosage: 1 DOSAGE FORM, BID (1 TABLET EVERY 12 HRS)
     Route: 048
     Dates: start: 20230705, end: 20240510
  2. LOSARTAN [Concomitant]
     Active Substance: LOSARTAN
     Indication: Hypertension
     Dosage: 50 MG, (1 TABLET), Q12H
  3. KETOCONAZOLE 200 [Concomitant]
     Indication: Product used for unknown indication
     Dosage: 200 MG, (1 TABLET) Q8H

REACTIONS (1)
  - Post procedural complication [Not Recovered/Not Resolved]

NARRATIVE: CASE EVENT DATE: 20240511
